FAERS Safety Report 9775122 (Version 2)
Quarter: 2014Q1

REPORT INFORMATION
  Report Type: Spontaneous
  Country: US (occurrence: US)
  Receive Date: 20131220
  Receipt Date: 20140303
  Transmission Date: 20141002
  Serious: No
  Sender: FDA-Public Use
  Company Number: US-B.I. PHARMACEUTICALS,INC./RIDGEFIELD-2013-BI-40625BP

PATIENT
  Age: 80 Year
  Sex: Female
  Weight: 82 kg

DRUGS (5)
  1. SPIRIVA [Suspect]
     Indication: CHRONIC OBSTRUCTIVE PULMONARY DISEASE
     Dosage: 18 MCG
     Route: 055
     Dates: start: 2010
  2. SPIRIVA [Suspect]
     Indication: COUGH
  3. SPIRIVA [Suspect]
     Indication: INCREASED UPPER AIRWAY SECRETION
  4. SPIRIVA [Suspect]
     Indication: BRONCHITIS
  5. SYMBICORT [Concomitant]
     Indication: CHRONIC OBSTRUCTIVE PULMONARY DISEASE
     Route: 055

REACTIONS (14)
  - Lung infection [Recovered/Resolved]
  - Chronic obstructive pulmonary disease [Recovered/Resolved]
  - Insomnia [Unknown]
  - Rotator cuff syndrome [Not Recovered/Not Resolved]
  - Cough [Unknown]
  - Chronic obstructive pulmonary disease [Not Recovered/Not Resolved]
  - Cough [Recovered/Resolved]
  - Choking [Recovered/Resolved]
  - Retching [Recovered/Resolved]
  - Increased upper airway secretion [Recovered/Resolved]
  - Insomnia [Recovered/Resolved]
  - Fatigue [Recovered/Resolved]
  - Dysphonia [Not Recovered/Not Resolved]
  - Off label use [Unknown]
